FAERS Safety Report 19295222 (Version 1)
Quarter: 2021Q2

REPORT INFORMATION
  Report Type: Spontaneous
  Country: US (occurrence: US)
  Receive Date: 20210524
  Receipt Date: 20210524
  Transmission Date: 20210717
  Serious: Yes (Other)
  Sender: FDA-Public Use
  Company Number: US-TOLMAR, INC.-21US027176

PATIENT
  Age: 89 Year
  Sex: Male

DRUGS (1)
  1. IMIQUIMOD. [Suspect]
     Active Substance: IMIQUIMOD
     Indication: METASTATIC MALIGNANT MELANOMA
     Dosage: UNK, QD
     Route: 061

REACTIONS (5)
  - Metastatic malignant melanoma [Unknown]
  - Erythema [Unknown]
  - Skin exfoliation [Unknown]
  - Off label use [Unknown]
  - Skin erosion [Unknown]
